FAERS Safety Report 9696924 (Version 3)
Quarter: 2015Q3

REPORT INFORMATION
  Report Type: Spontaneous
  Country: US (occurrence: US)
  Receive Date: 20131119
  Receipt Date: 20150803
  Transmission Date: 20151125
  Serious: No
  Sender: FDA-Public Use
  Company Number: US-GILEAD-2007-0013991

PATIENT
  Age: 31 Year
  Sex: Female
  Weight: 63.5 kg

DRUGS (18)
  1. REMODULIN [Concomitant]
     Active Substance: TREPROSTINIL
     Route: 058
  2. LIDOCAINE. [Concomitant]
     Active Substance: LIDOCAINE
     Route: 061
  3. TYLENOL [Concomitant]
     Active Substance: ACETAMINOPHEN
     Route: 048
  4. COUMADIN [Concomitant]
     Active Substance: WARFARIN SODIUM
     Route: 048
  5. LIDODERM [Concomitant]
     Active Substance: LIDOCAINE
  6. ALLOPURINOL. [Concomitant]
     Active Substance: ALLOPURINOL
     Route: 048
  7. KETOPROFEN. [Concomitant]
     Active Substance: KETOPROFEN
     Route: 061
  8. LETAIRIS [Suspect]
     Active Substance: AMBRISENTAN
     Indication: PULMONARY ARTERIAL HYPERTENSION
     Route: 048
     Dates: start: 20070928, end: 200710
  9. OXYCODONE [Concomitant]
     Active Substance: OXYCODONE
     Route: 048
  10. LOMOTIL [Concomitant]
     Active Substance: ATROPINE SULFATE\DIPHENOXYLATE HYDROCHLORIDE
     Route: 048
  11. CLONIDINE. [Concomitant]
     Active Substance: CLONIDINE
  12. OXYGEN. [Concomitant]
     Active Substance: OXYGEN
     Route: 055
  13. KETAMINE [Concomitant]
     Active Substance: KETAMINE
  14. AMITRIPTYLINE [Concomitant]
     Active Substance: AMITRIPTYLINE
     Route: 048
  15. POLOXAMER [Concomitant]
     Active Substance: POLOXAMER
     Route: 061
  16. MS CONTIN [Concomitant]
     Active Substance: MORPHINE SULFATE
     Route: 048
  17. GABAPENTIN. [Concomitant]
     Active Substance: GABAPENTIN
     Route: 048
  18. LECITHIN [Concomitant]
     Active Substance: LECITHIN

REACTIONS (1)
  - Headache [Unknown]
